FAERS Safety Report 14491666 (Version 3)
Quarter: 2018Q2

REPORT INFORMATION
  Report Type: Report from Study
  Country: GB (occurrence: GB)
  Receive Date: 20180206
  Receipt Date: 20180601
  Transmission Date: 20180711
  Serious: Yes (Hospitalization, Other)
  Sender: FDA-Public Use
  Company Number: GB-MYLANLABS-2018M1006926

PATIENT
  Age: 16 Year
  Sex: Female
  Weight: 70.7 kg

DRUGS (70)
  1. CIPROFLOXACIN. [Concomitant]
     Active Substance: CIPROFLOXACIN
     Dosage: 1500 MG, QD
     Route: 048
     Dates: start: 20170907, end: 20171027
  2. CIPROFLOXACIN. [Concomitant]
     Active Substance: CIPROFLOXACIN
     Dosage: 1200 MG, UNK
     Route: 040
     Dates: start: 20170827, end: 20170907
  3. CIPROFLOXACIN. [Concomitant]
     Active Substance: CIPROFLOXACIN
     Dosage: 1500 UNK, UNK
     Route: 048
     Dates: start: 20171222, end: 20171223
  4. LOTRIDERM [Concomitant]
     Active Substance: BETAMETHASONE DIPROPIONATE\CLOTRIMAZOLE
     Indication: VASCULITIS
  5. ADCAL D3 [Concomitant]
     Active Substance: CALCIUM CARBONATE\CHOLECALCIFEROL
     Indication: VITAMIN D DEFICIENCY
     Dosage: 1 DF, QD
     Route: 048
     Dates: start: 20171028
  6. ADCAL D3 [Concomitant]
     Active Substance: CALCIUM CARBONATE\CHOLECALCIFEROL
     Indication: CROHN^S DISEASE
     Dosage: 1 DF, QD
     Dates: start: 20171222
  7. DERMOL                             /00337102/ [Concomitant]
     Active Substance: CLOBETASOL PROPIONATE
     Indication: VASCULITIS
     Dosage: LOTION
     Route: 061
     Dates: start: 20160101
  8. BETAMETHASONE. [Concomitant]
     Active Substance: BETAMETHASONE
     Indication: CROHN^S DISEASE
  9. EUMOVATE OINTMENT [Concomitant]
     Indication: VASCULITIS
  10. METRONIDAZOLE. [Concomitant]
     Active Substance: METRONIDAZOLE
     Dosage: 1200 MG, QD
     Route: 048
     Dates: start: 20171229
  11. ADCAL D3 [Concomitant]
     Active Substance: CALCIUM CARBONATE\CHOLECALCIFEROL
     Indication: VITAMIN SUPPLEMENTATION
  12. MOVICOL [Concomitant]
     Active Substance: POLYETHYLENE GLYCOL 3350\POTASSIUM CHLORIDE\SODIUM BICARBONATE\SODIUM CHLORIDE
     Indication: CROHN^S DISEASE
     Dosage: 2 DF, QD
     Route: 048
     Dates: start: 20161109
  13. MOVICOL [Concomitant]
     Active Substance: POLYETHYLENE GLYCOL 3350\POTASSIUM CHLORIDE\SODIUM BICARBONATE\SODIUM CHLORIDE
     Indication: CROHN^S DISEASE
  14. NYSTATIN. [Concomitant]
     Active Substance: NYSTATIN
     Indication: VASCULITIS
  15. CHLORHEXIDINE [Concomitant]
     Active Substance: CHLORHEXIDINE
     Indication: GRANULOMA
     Dosage: 40 ML, QD
     Dates: start: 20171030
  16. KETOCONAZOLE. [Concomitant]
     Active Substance: KETOCONAZOLE
     Indication: FUNGAL SKIN INFECTION
  17. CIPROFLOXACIN. [Concomitant]
     Active Substance: CIPROFLOXACIN
     Dosage: 1500 MG, QD
     Route: 048
     Dates: start: 20171031
  18. LOTRIDERM [Concomitant]
     Active Substance: BETAMETHASONE DIPROPIONATE\CLOTRIMAZOLE
     Indication: GRANULOMA
  19. ADCAL D3 [Concomitant]
     Active Substance: CALCIUM CARBONATE\CHOLECALCIFEROL
     Indication: PROPHYLAXIS
  20. ADCAL D3 [Concomitant]
     Active Substance: CALCIUM CARBONATE\CHOLECALCIFEROL
     Indication: VITAMIN SUPPLEMENTATION
  21. MOVICOL [Concomitant]
     Active Substance: POLYETHYLENE GLYCOL 3350\POTASSIUM CHLORIDE\SODIUM BICARBONATE\SODIUM CHLORIDE
     Indication: CROHN^S DISEASE
  22. PROTOPIC [Concomitant]
     Active Substance: TACROLIMUS
     Indication: GRANULOMA
  23. NYSTATIN. [Concomitant]
     Active Substance: NYSTATIN
     Indication: GRANULOMA
  24. CHLORHEXIDINE [Concomitant]
     Active Substance: CHLORHEXIDINE
     Indication: CROHN^S DISEASE
     Dosage: 40 UNK, UNK
     Route: 048
     Dates: start: 20171222
  25. AZATHIOPRINE. [Suspect]
     Active Substance: AZATHIOPRINE
     Dosage: 150 MG, QD
     Route: 048
     Dates: start: 20161212, end: 20170801
  26. HUMIRA [Suspect]
     Active Substance: ADALIMUMAB
     Indication: CROHN^S DISEASE
     Dosage: 40 MG, UNK
     Route: 058
     Dates: start: 201710
  27. CIPROFLOXACIN. [Concomitant]
     Active Substance: CIPROFLOXACIN
     Dosage: 1200 MG, UNK
     Route: 040
     Dates: start: 20171027, end: 20171030
  28. CIPROFLOXACIN. [Concomitant]
     Active Substance: CIPROFLOXACIN
     Dosage: 750 MG, UNK
     Route: 040
  29. DOXYCYCLINE. [Concomitant]
     Active Substance: DOXYCYCLINE
     Indication: GRANULOMA
  30. DOXYCYCLINE. [Concomitant]
     Active Substance: DOXYCYCLINE
     Indication: VASCULITIS
  31. BETAMETHASONE. [Concomitant]
     Active Substance: BETAMETHASONE
     Indication: GRANULOMA
  32. NYSTATIN. [Concomitant]
     Active Substance: NYSTATIN
     Indication: CROHN^S DISEASE
  33. KETOCONAZOLE. [Concomitant]
     Active Substance: KETOCONAZOLE
     Indication: FUNGAL SKIN INFECTION
  34. TRIMOVATE                          /00456501/ [Concomitant]
     Indication: RASH
     Dosage: 2 UNK, UNK
     Route: 061
     Dates: start: 20170729
  35. OMEPRAZOLE. [Concomitant]
     Active Substance: OMEPRAZOLE
     Indication: CROHN^S DISEASE
  36. METRONIDAZOLE. [Concomitant]
     Active Substance: METRONIDAZOLE
     Dosage: 1200 MG, QD
     Route: 048
     Dates: start: 20171222, end: 20171223
  37. CIPROFLOXACIN. [Concomitant]
     Active Substance: CIPROFLOXACIN
     Dosage: 1500 MG, QD
     Route: 040
     Dates: start: 20170107, end: 20170112
  38. FRESUBIN                           /07459901/ [Concomitant]
     Active Substance: CARBOHYDRATES\FATTY ACIDS\MINERALS\PROTEIN\VITAMINS
     Indication: GRANULOMA
  39. DOXYCYCLINE. [Concomitant]
     Active Substance: DOXYCYCLINE
     Indication: CROHN^S DISEASE
     Dosage: 400 UNK, UNK
     Route: 048
     Dates: start: 20171222
  40. BETAMETHASONE. [Concomitant]
     Active Substance: BETAMETHASONE
     Indication: VASCULITIS
  41. EUMOVATE OINTMENT [Concomitant]
     Indication: GRANULOMA
  42. ITRACONAZOLE. [Concomitant]
     Active Substance: ITRACONAZOLE
     Indication: ASPERGILLUS INFECTION
     Dosage: 200 MG, QD
     Route: 048
     Dates: start: 20170825
  43. METRONIDAZOLE. [Concomitant]
     Active Substance: METRONIDAZOLE
     Indication: PRODUCT USED FOR UNKNOWN INDICATION
     Dosage: 1500 MG, QD
     Route: 040
     Dates: start: 20170726, end: 20170810
  44. METRONIDAZOLE. [Concomitant]
     Active Substance: METRONIDAZOLE
     Dosage: 1200 MG, QD
     Route: 048
     Dates: start: 20170907, end: 20171031
  45. GENTAMICIN                         /00047102/ [Concomitant]
     Active Substance: GENTAMICIN
     Indication: CROHN^S DISEASE
     Dosage: 400 MG, QD
     Route: 048
     Dates: start: 20171229, end: 20180101
  46. ALIMEMAZINE [Concomitant]
     Active Substance: TRIMEPRAZINE
     Indication: CROHN^S DISEASE
     Dosage: 30 MG, QD
     Route: 048
     Dates: start: 20171222, end: 20171223
  47. HUMIRA [Suspect]
     Active Substance: ADALIMUMAB
     Indication: CROHN^S DISEASE
     Dosage: 80 MG, UNK
     Route: 058
     Dates: start: 20170112, end: 20170727
  48. CIPROFLOXACIN. [Concomitant]
     Active Substance: CIPROFLOXACIN
     Indication: CROHN^S DISEASE
     Dosage: 1500 MG, QD
     Route: 048
     Dates: start: 20170810, end: 20170827
  49. CIPROFLOXACIN. [Concomitant]
     Active Substance: CIPROFLOXACIN
     Dosage: 1500 MG, QD
     Route: 048
     Dates: start: 20170112, end: 20170518
  50. CIPROFLOXACIN. [Concomitant]
     Active Substance: CIPROFLOXACIN
     Dosage: 1200 MG, QD
     Route: 040
     Dates: start: 20170726, end: 20170810
  51. CIPROFLOXACIN. [Concomitant]
     Active Substance: CIPROFLOXACIN
     Dosage: 1000 MG, QD
     Route: 048
     Dates: start: 20161109, end: 20170107
  52. LOTRIDERM [Concomitant]
     Active Substance: BETAMETHASONE DIPROPIONATE\CLOTRIMAZOLE
     Route: 061
     Dates: start: 20171028
  53. SYNALAR [Concomitant]
     Active Substance: FLUOCINOLONE ACETONIDE
     Indication: SKIN INFECTION
  54. EUMOVATE OINTMENT [Concomitant]
     Indication: VASCULITIS
     Dosage: 0.1 %, QD
     Route: 061
     Dates: start: 20171130
  55. PROTOPIC [Concomitant]
     Active Substance: TACROLIMUS
     Indication: VASCULITIS
     Dosage: 0.2 %, QD
     Route: 061
     Dates: start: 20160101, end: 20171130
  56. NYSTATIN. [Concomitant]
     Active Substance: NYSTATIN
     Indication: VASCULITIS
     Route: 061
     Dates: start: 20171027
  57. CHLORPHENAMINE [Concomitant]
     Active Substance: CHLORPHENIRAMINE MALEATE
     Indication: RASH
     Dosage: 16 MG, QD
     Dates: start: 20170726, end: 201708
  58. AZATHIOPRINE. [Suspect]
     Active Substance: AZATHIOPRINE
     Dosage: 100 MG, QD
     Route: 048
     Dates: start: 20160831, end: 20161211
  59. FRESUBIN                           /07459901/ [Concomitant]
     Active Substance: CARBOHYDRATES\FATTY ACIDS\MINERALS\PROTEIN\VITAMINS
     Indication: HYPOPHAGIA
     Dosage: 200 ML, QD
     Route: 048
     Dates: start: 20171028
  60. SYNALAR [Concomitant]
     Active Substance: FLUOCINOLONE ACETONIDE
     Indication: INFECTION
  61. BETAMETHASONE. [Concomitant]
     Active Substance: BETAMETHASONE
     Indication: VASCULITIS
     Dosage: 2000 G, QD
     Route: 065
     Dates: start: 20171028
  62. KETOCONAZOLE. [Concomitant]
     Active Substance: KETOCONAZOLE
     Indication: FUNGAL INFECTION
     Dosage: SHAMPOO
     Route: 061
     Dates: start: 20170731
  63. OMEPRAZOLE. [Concomitant]
     Active Substance: OMEPRAZOLE
     Indication: CROHN^S DISEASE
     Dosage: 20 MG, QD
     Route: 048
     Dates: start: 20170828
  64. AZATHIOPRINE. [Suspect]
     Active Substance: AZATHIOPRINE
     Indication: CROHN^S DISEASE
     Dosage: 100 MG, QD
     Route: 048
     Dates: start: 20090401, end: 20161211
  65. PREDNISOLONE. [Concomitant]
     Active Substance: PREDNISOLONE
     Indication: CROHN^S DISEASE
     Dosage: 40 MG, QD
     Route: 048
     Dates: start: 20171026
  66. SYNALAR [Concomitant]
     Active Substance: FLUOCINOLONE ACETONIDE
     Indication: LOCALISED INFECTION
     Dosage: GEL FOR SCALP 2 QD
     Route: 061
     Dates: start: 20170731
  67. DOXYCYCLINE. [Concomitant]
     Active Substance: DOXYCYCLINE
     Indication: VASCULITIS
     Dosage: 400 MG, QD
     Route: 065
     Dates: start: 20171027
  68. FERROUS SULFATE. [Concomitant]
     Active Substance: FERROUS SULFATE
     Indication: CROHN^S DISEASE
     Dosage: 200 MG, QD
     Route: 048
     Dates: start: 20121003
  69. PROTOPIC [Concomitant]
     Active Substance: TACROLIMUS
     Indication: VASCULITIS
     Dosage: ALTERNATE DAYS
     Route: 061
  70. METRONIDAZOLE. [Concomitant]
     Active Substance: METRONIDAZOLE
     Dosage: 1200 MG, QD
     Route: 048
     Dates: start: 20170112, end: 20170418

REACTIONS (6)
  - Stoma site infection [Recovered/Resolved]
  - Viral skin infection [Not Recovered/Not Resolved]
  - Erythema multiforme [Not Recovered/Not Resolved]
  - Crohn^s disease [Recovered/Resolved]
  - Rash [Not Recovered/Not Resolved]
  - Anal fistula [Recovered/Resolved]

NARRATIVE: CASE EVENT DATE: 201707
